FAERS Safety Report 15943479 (Version 1)
Quarter: 2019Q1

REPORT INFORMATION
  Report Type: Spontaneous
  Country: GB (occurrence: GB)
  Receive Date: 20190210
  Receipt Date: 20190210
  Transmission Date: 20190417
  Serious: Yes (Other)
  Sender: FDA-Public Use
  Company Number: PHHY2019GB028344

PATIENT
  Sex: Male

DRUGS (9)
  1. IOPIDINE [Suspect]
     Active Substance: APRACLONIDINE HYDROCHLORIDE
     Dosage: 2 GTT, QD
     Route: 065
     Dates: start: 20150416, end: 20150505
  2. DROPODEX [Suspect]
     Active Substance: DEXAMETHASONE SODIUM PHOSPHATE
     Dosage: 4 GTT, QD (EVERY 4 DAYS)
     Route: 047
     Dates: start: 201412
  3. DROPODEX [Suspect]
     Active Substance: DEXAMETHASONE SODIUM PHOSPHATE
     Dosage: 3 GTT, QD
     Route: 047
     Dates: start: 201412
  4. IOPIDINE [Suspect]
     Active Substance: APRACLONIDINE HYDROCHLORIDE
     Dosage: 3 GTT, QD
     Route: 065
     Dates: start: 20141211, end: 20141217
  5. IOPIDINE [Suspect]
     Active Substance: APRACLONIDINE HYDROCHLORIDE
     Dosage: 2 GTT, QD
     Route: 065
     Dates: start: 20141218, end: 20141230
  6. DROPODEX [Suspect]
     Active Substance: DEXAMETHASONE SODIUM PHOSPHATE
     Indication: POSTOPERATIVE CARE
     Dosage: 1 GTT, QD
     Route: 047
  7. MAXIDEX [Suspect]
     Active Substance: DEXAMETHASONE
     Indication: GLAUCOMA
     Dosage: 4 GTT, QD
     Route: 047
     Dates: start: 20150325, end: 20150401
  8. IOPIDINE [Suspect]
     Active Substance: APRACLONIDINE HYDROCHLORIDE
     Indication: PRODUCT USED FOR UNKNOWN INDICATION
     Dosage: 2 GTT, QD
     Route: 065
     Dates: start: 20140402, end: 20140407
  9. DROPODEX [Suspect]
     Active Substance: DEXAMETHASONE SODIUM PHOSPHATE
     Dosage: 1 GTT, Q2H (7 DAYS)
     Route: 047
     Dates: start: 201412

REACTIONS (1)
  - Blindness [Unknown]
